FAERS Safety Report 4637122-6 (Version None)
Quarter: 2005Q2

REPORT INFORMATION
  Report Type: 
  Country: None (occurrence: None)
  Receive Date: 20050325
  Receipt Date: 20050127
  Transmission Date: 20051028
  Serious: No
  Sender: FDA-Public Use
  Company Number: USA040874273

PATIENT
  Age: 76 Year
  Sex: Female
  Weight: 45 kg

DRUGS (3)
  1. FORTEO [Suspect]
     Indication: OSTEOPOROSIS
     Dates: start: 20040601
  2. BEXTRA [Concomitant]
  3. NEXIUM [Concomitant]

REACTIONS (10)
  - ARTHRITIS [None]
  - CHEST PAIN [None]
  - FUNGAL INFECTION [None]
  - GASTRIC DISORDER [None]
  - HEART RATE DECREASED [None]
  - HYPOACUSIS [None]
  - NASOPHARYNGITIS [None]
  - SINUS DISORDER [None]
  - ULCER [None]
  - WEIGHT DECREASED [None]
